FAERS Safety Report 4316528-9 (Version None)
Quarter: 2004Q1

REPORT INFORMATION
  Report Type: 
  Country: None (occurrence: None)
  Receive Date: 20040312
  Receipt Date: 20031209
  Transmission Date: 20041129
  Serious: Yes (Hospitalization)
  Sender: FDA-Public Use
  Company Number: WAES 0312USA00991

PATIENT
  Age: 52 Year
  Sex: Female
  Weight: 72 kg

DRUGS (29)
  1. LORCET-HD [Concomitant]
     Indication: PAIN
     Dates: start: 19930901
  2. COMBIVENT [Concomitant]
     Dates: start: 20020101
  3. ASPIRIN [Concomitant]
     Indication: PROPHYLAXIS
     Dates: start: 20020101
  4. LIPITOR [Concomitant]
     Indication: BLOOD CHOLESTEROL INCREASED
     Dates: start: 20020101
  5. RHINOCORT [Concomitant]
     Indication: RHINITIS ALLERGIC
     Dates: start: 20010701, end: 20020701
  6. WELLBUTRIN [Concomitant]
     Indication: EX-SMOKER
     Dates: start: 19940601
  7. COREG [Concomitant]
     Indication: HYPERTENSION
     Dates: start: 20020101
  8. TAGAMET [Concomitant]
     Indication: ULCER
     Dates: start: 19930101
  9. BIAXIN [Concomitant]
  10. PLAVIX [Concomitant]
     Indication: ANTIPLATELET THERAPY
     Dates: start: 20020101
  11. CYCLOBENZAPRINE HYDROCHLORIDE [Concomitant]
     Indication: PAIN
     Dates: start: 19980601
  12. VALIUM [Concomitant]
     Indication: ANXIETY
     Dates: start: 20020101
  13. VALIUM [Concomitant]
     Dates: end: 20011201
  14. BENADRYL [Concomitant]
     Indication: SLEEP DISORDER
     Dates: start: 19941101
  15. PREMPRO [Concomitant]
     Indication: HORMONE REPLACEMENT THERAPY
     Dates: start: 20020201, end: 20020501
  16. ADVAIR DISKUS 100/50 [Concomitant]
     Dates: start: 20020101
  17. PROLEX DH [Concomitant]
  18. HYDROCODONE HYDROCHLORIDE [Concomitant]
     Indication: PAIN
     Dates: start: 19991001, end: 20020701
  19. MOTRIN [Concomitant]
     Indication: PAIN
     Dates: start: 19980901, end: 19981001
  20. MOTRIN [Concomitant]
  21. TOPROL-XL [Concomitant]
     Indication: HYPERTENSION
     Dates: start: 20011101, end: 20011201
  22. DAYPRO [Concomitant]
     Indication: PAIN
     Dates: start: 19930901
  23. VIOXX [Suspect]
     Indication: BACK PAIN
     Route: 048
     Dates: start: 20010107, end: 20020401
  24. VIOXX [Suspect]
     Route: 048
  25. VIOXX [Suspect]
     Indication: ARTHRITIS
     Route: 048
     Dates: start: 20010107, end: 20020401
  26. VIOXX [Suspect]
     Route: 048
  27. MICARDIS [Concomitant]
     Indication: HYPERTENSION
     Dates: start: 20011101, end: 20011201
  28. DETROL [Concomitant]
     Indication: URINARY INCONTINENCE
     Dates: start: 19991201
  29. MAVIK [Concomitant]
     Indication: HYPERTENSION
     Dates: start: 20020101

REACTIONS (18)
  - ACUTE MYOCARDIAL INFARCTION [None]
  - ANAEMIA [None]
  - BLOOD CHOLESTEROL INCREASED [None]
  - BLOOD PH DECREASED [None]
  - CARDIAC FAILURE CONGESTIVE [None]
  - CHRONIC OBSTRUCTIVE AIRWAYS DISEASE [None]
  - CORONARY ARTERY DISEASE [None]
  - HEPATIC ENZYME INCREASED [None]
  - HYPERTENSION [None]
  - HYPERTENSIVE HEART DISEASE [None]
  - HYPOKALAEMIA [None]
  - HYPOXIA [None]
  - MYOCARDIAL INFARCTION [None]
  - PULMONARY OEDEMA [None]
  - RESPIRATORY FAILURE [None]
  - SYNCOPE [None]
  - VENTRICULAR HYPERTROPHY [None]
  - VENTRICULAR HYPOKINESIA [None]
